FAERS Safety Report 4612050-0 (Version None)
Quarter: 2005Q2

REPORT INFORMATION
  Report Type: 
  Country: None (occurrence: None)
  Receive Date: 20050308
  Receipt Date: 20050103
  Transmission Date: 20051028
  Serious: Yes (Other)
  Sender: FDA-Public Use
  Company Number: 2005UW00097

PATIENT
  Age: 73 Year
  Sex: Female
  Weight: 90.718 kg

DRUGS (7)
  1. CRESTOR [Suspect]
     Indication: BLOOD CHOLESTEROL INCREASED
     Dosage: 10 MG QD PO
     Route: 048
     Dates: start: 20041101, end: 20041226
  2. SYNTHROID [Concomitant]
  3. HYZAAR [Concomitant]
  4. TOPROL-XL [Concomitant]
  5. AMITRIPTYLINE [Concomitant]
  6. ALLOPURINOL [Concomitant]
  7. POTASSIUM CHLORIDE [Concomitant]

REACTIONS (2)
  - DIFFICULTY IN WALKING [None]
  - DYSPNOEA [None]
